FAERS Safety Report 11842842 (Version 1)
Quarter: 2015Q4

REPORT INFORMATION
  Report Type: Spontaneous
  Country: CA (occurrence: CA)
  Receive Date: 20151216
  Receipt Date: 20151216
  Transmission Date: 20160305
  Serious: Yes (Other)
  Sender: FDA-Public Use
  Company Number: CA-TEVA-618520USA

PATIENT
  Age: 46 Year
  Sex: Female

DRUGS (1)
  1. TEVA-LETROZOLE [Suspect]
     Active Substance: LETROZOLE
     Indication: BREAST CANCER
     Dosage: 2.5 MILLIGRAM DAILY; STRENGTH: 2.5MG; 2.5MG DAILY
     Route: 065
     Dates: start: 20150701

REACTIONS (6)
  - Blood urine present [Recovered/Resolved]
  - Cystitis [Unknown]
  - Pain [Not Recovered/Not Resolved]
  - Tubulointerstitial nephritis [Unknown]
  - Musculoskeletal stiffness [Unknown]
  - White blood cells urine [Recovered/Resolved]

NARRATIVE: CASE EVENT DATE: 2015
